FAERS Safety Report 25315681 (Version 1)
Quarter: 2025Q2

REPORT INFORMATION
  Report Type: Spontaneous
  Country: US (occurrence: US)
  Receive Date: 20250515
  Receipt Date: 20250515
  Transmission Date: 20250716
  Serious: No
  Sender: UCB
  Company Number: US-UCBSA-2024066636

PATIENT
  Sex: Male

DRUGS (1)
  1. CIMZIA [Suspect]
     Active Substance: CERTOLIZUMAB PEGOL
     Indication: Ankylosing spondylitis
     Dosage: 200 MILLIGRAM, EV 2 WEEKS(QOW)
     Route: 058

REACTIONS (8)
  - Skin disorder [Unknown]
  - Scar [Unknown]
  - Pain [Unknown]
  - Osteoarthritis [Unknown]
  - Blister [Unknown]
  - Peripheral swelling [Unknown]
  - Finger deformity [Unknown]
  - Skin laceration [Unknown]
